FAERS Safety Report 20996003 (Version 1)
Quarter: 2022Q2

REPORT INFORMATION
  Report Type: Spontaneous
  Country: US (occurrence: US)
  Receive Date: 20220623
  Receipt Date: 20220623
  Transmission Date: 20220721
  Serious: Yes (Hospitalization, Other)
  Sender: FDA-Public Use
  Company Number: US-MLMSERVICE-20211110-3214860-1

PATIENT
  Age: 80 Year
  Sex: Male

DRUGS (3)
  1. PREDNISONE [Suspect]
     Active Substance: PREDNISONE
     Indication: Giant cell arteritis
     Dosage: 20 MILLIGRAM
     Route: 048
  2. PREDNISONE [Suspect]
     Active Substance: PREDNISONE
     Dosage: UNK (HIGH DOSE)
     Route: 065
  3. PREDNISONE [Suspect]
     Active Substance: PREDNISONE
     Dosage: UNK (TAPER)
     Route: 065

REACTIONS (8)
  - Pseudomonas infection [Recovered/Resolved]
  - Facial paresis [Recovered/Resolved]
  - Infection [Recovered/Resolved]
  - Mastoiditis [Recovered/Resolved]
  - Osteomyelitis [Recovered/Resolved]
  - Aphasia [Recovered/Resolved]
  - Dysphagia [Recovered/Resolved]
  - Hypoacusis [Not Recovered/Not Resolved]
